FAERS Safety Report 24548567 (Version 4)
Quarter: 2025Q2

REPORT INFORMATION
  Report Type: Spontaneous
  Country: CA (occurrence: CA)
  Receive Date: 20241025
  Receipt Date: 20250610
  Transmission Date: 20250716
  Serious: Yes (Other)
  Sender: CELLTRION
  Company Number: CA-PFIZER INC-202400060349

PATIENT

DRUGS (14)
  1. INFLECTRA [Suspect]
     Active Substance: INFLIXIMAB-DYYB
     Indication: Psoriatic arthropathy
     Route: 042
     Dates: start: 20160704, end: 20190312
  2. INFLECTRA [Suspect]
     Active Substance: INFLIXIMAB-DYYB
     Route: 042
     Dates: start: 20190523, end: 20240306
  3. INFLECTRA [Suspect]
     Active Substance: INFLIXIMAB-DYYB
     Route: 042
     Dates: start: 20240502
  4. INFLECTRA [Suspect]
     Active Substance: INFLIXIMAB-DYYB
     Route: 042
     Dates: start: 20240821
  5. INFLECTRA [Suspect]
     Active Substance: INFLIXIMAB-DYYB
     Route: 042
     Dates: start: 20241016
  6. INFLECTRA [Suspect]
     Active Substance: INFLIXIMAB-DYYB
     Route: 042
     Dates: start: 20250205
  7. CELEBREX [Concomitant]
     Active Substance: CELECOXIB
  8. FOLIC ACID [Concomitant]
     Active Substance: FOLIC ACID
  9. LEFLUNOMIDE [Concomitant]
     Active Substance: LEFLUNOMIDE
  10. LOSEC [Concomitant]
     Active Substance: OMEPRAZOLE
  11. METHOTREXATE [Concomitant]
     Active Substance: METHOTREXATE
     Dates: start: 2012
  12. PREDNISONE [Concomitant]
     Active Substance: PREDNISONE
  13. RAMIPRIL [Concomitant]
     Active Substance: RAMIPRIL
  14. SULFASALAZINE [Concomitant]
     Active Substance: SULFASALAZINE
     Dates: start: 1983

REACTIONS (5)
  - Pulmonary fibrosis [Unknown]
  - Interstitial lung disease [Unknown]
  - Lower respiratory tract infection [Unknown]
  - Pneumonia [Not Recovered/Not Resolved]
  - Off label use [Unknown]

NARRATIVE: CASE EVENT DATE: 20240101
